FAERS Safety Report 17797016 (Version 4)
Quarter: 2020Q2

REPORT INFORMATION
  Report Type: Spontaneous
  Country: GB (occurrence: GB)
  Receive Date: 20200518
  Receipt Date: 20200618
  Transmission Date: 20200714
  Serious: Yes (Other)
  Sender: FDA-Public Use
  Company Number: GB-AUROBINDO-AUR-APL-2020-024476

PATIENT
  Age: 67 Year
  Sex: Male

DRUGS (5)
  1. NORTRIPTYLINE [Suspect]
     Active Substance: NORTRIPTYLINE
     Indication: MAJOR DEPRESSION
     Dosage: UNK
     Route: 016
  2. BUPROPION. [Suspect]
     Active Substance: BUPROPION
     Indication: MAJOR DEPRESSION
     Dosage: UNK
     Route: 065
  3. FLUVOXAMINE [Suspect]
     Active Substance: FLUVOXAMINE
     Indication: MAJOR DEPRESSION
     Dosage: UNK
     Route: 065
  4. MIRTAZAPINE. [Suspect]
     Active Substance: MIRTAZAPINE
     Indication: MAJOR DEPRESSION
     Dosage: 30 MILLIGRAM, ONCE A DAY
     Route: 065
  5. AGOMELATINE [Suspect]
     Active Substance: AGOMELATINE
     Indication: MAJOR DEPRESSION
     Dosage: UNK
     Route: 065

REACTIONS (2)
  - Inappropriate antidiuretic hormone secretion [Recovered/Resolved]
  - Hyponatraemia [Recovered/Resolved]
